FAERS Safety Report 9613613 (Version 1)
Quarter: 2013Q4

REPORT INFORMATION
  Report Type: Other
  Country: US (occurrence: US)
  Receive Date: 20131010
  Receipt Date: 20131010
  Transmission Date: 20140711
  Serious: Yes (Other)
  Sender: FDA-Public Use
  Company Number: US-GALDERMA-US13003056

PATIENT
  Age: 57 Year
  Sex: Female
  Weight: 63 kg

DRUGS (9)
  1. METROGEL [Suspect]
     Indication: ROSACEA
     Dosage: 0.75%
     Route: 061
     Dates: start: 2008, end: 2011
  2. METROGEL (METRONIDAZOLE) GEL, 1% [Suspect]
     Indication: ROSACEA
     Dosage: 1%
     Route: 061
     Dates: start: 2011, end: 201308
  3. TRILEPTAL (OXCARBAZEPINE) [Concomitant]
     Indication: TRIGEMINAL NEURALGIA
     Dosage: 150MG
     Route: 048
     Dates: start: 2012
  4. BACLOFEN [Concomitant]
     Indication: TRIGEMINAL NEURALGIA
     Dosage: 40MG
     Route: 048
     Dates: start: 2012
  5. AMITRIPTYLINE [Concomitant]
     Indication: PAIN IN EXTREMITY
     Dosage: 30MG
     Route: 048
  6. AMITRIPTYLINE [Concomitant]
     Indication: PAIN IN EXTREMITY
  7. AVEENO ULTRA CALMING DAILY MOISTURIZER [Concomitant]
     Indication: DRY SKIN PROPHYLAXIS
     Route: 061
  8. AVEENO ULTRA CALMING CLEANSER [Concomitant]
     Indication: THERAPEUTIC SKIN CARE TOPICAL
     Route: 061
  9. FINACEA (AZELAIC ACID) [Concomitant]
     Indication: PRODUCT USED FOR UNKNOWN INDICATION
     Route: 061

REACTIONS (7)
  - Neuropathy peripheral [Unknown]
  - Trigeminal neuralgia [Unknown]
  - Arthralgia [Unknown]
  - Pain [Recovering/Resolving]
  - Skin burning sensation [Recovering/Resolving]
  - Skin irritation [Unknown]
  - Hypoaesthesia [Recovering/Resolving]
